FAERS Safety Report 24564906 (Version 2)
Quarter: 2024Q4

REPORT INFORMATION
  Report Type: Spontaneous
  Country: AR (occurrence: AR)
  Receive Date: 20241030
  Receipt Date: 20241227
  Transmission Date: 20250115
  Serious: No
  Sender: PFIZER
  Company Number: AR-PFIZER INC-PV202400026597

PATIENT
  Age: 14 Year
  Sex: Male
  Weight: 48.5 kg

DRUGS (2)
  1. GENOTROPIN [Suspect]
     Active Substance: SOMATROPIN
     Indication: Short stature
     Dosage: MORE THAN 2MG 7 TIMES PER WEEK
     Dates: start: 20210406
  2. GENOTROPIN [Suspect]
     Active Substance: SOMATROPIN
     Dosage: 3.3 MG 6 TIMES PER WEEK
     Route: 058
     Dates: start: 202105

REACTIONS (3)
  - Product prescribing error [Unknown]
  - Intentional product misuse [Unknown]
  - Device mechanical issue [Unknown]
